FAERS Safety Report 24911649 (Version 2)
Quarter: 2025Q3

REPORT INFORMATION
  Report Type: Spontaneous
  Country: EU (occurrence: EU)
  Receive Date: 20250131
  Receipt Date: 20250818
  Transmission Date: 20251021
  Serious: No
  Sender: SANDOZ
  Company Number: EU-SANDOZ-SDZ2025FR001332

PATIENT
  Age: 34 Month
  Sex: Male

DRUGS (1)
  1. OMNITROPE [Suspect]
     Active Substance: SOMATROPIN
     Indication: Growth retardation
     Dosage: 0.3MG/D 7D/7
     Route: 065
     Dates: start: 20241007

REACTIONS (1)
  - Drug dose omission by device [Unknown]
